FAERS Safety Report 20974919 (Version 1)
Quarter: 2022Q2

REPORT INFORMATION
  Report Type: Spontaneous
  Country: US (occurrence: None)
  Receive Date: 20220617
  Receipt Date: 20220617
  Transmission Date: 20220721
  Serious: No
  Sender: FDA-Public Use
  Company Number: None

PATIENT
  Age: 36 Year
  Sex: Female
  Weight: 99.79 kg

DRUGS (2)
  1. XELJANZ XR [Suspect]
     Active Substance: TOFACITINIB CITRATE
     Indication: Psoriatic arthropathy
     Dosage: FREQUENCY : DAILY;?
     Route: 048
     Dates: start: 202110
  2. XELJANZ XR [Suspect]
     Active Substance: TOFACITINIB CITRATE
     Indication: Crohn^s disease

REACTIONS (9)
  - Infection [None]
  - Psoriasis [None]
  - Symptom recurrence [None]
  - Abdominal pain upper [None]
  - Diarrhoea [None]
  - Feeling abnormal [None]
  - Back pain [None]
  - Illness [None]
  - Ear infection [None]
